FAERS Safety Report 19206870 (Version 2)
Quarter: 2021Q2

REPORT INFORMATION
  Report Type: Spontaneous
  Country: US (occurrence: US)
  Receive Date: 20210430
  Receipt Date: 20210517
  Transmission Date: 20210717
  Serious: Yes (Hospitalization)
  Sender: FDA-Public Use
  Company Number: US-VYERA PHARMACEUTICALS, LLC-2021VYE00009

PATIENT
  Age: 87 Year
  Sex: Male
  Weight: 73.02 kg

DRUGS (6)
  1. SULFADIAZINE. [Suspect]
     Active Substance: SULFADIAZINE
     Dosage: 1500 MG, 1X/DAY
  2. BRIMONIDINE [Suspect]
     Active Substance: BRIMONIDINE TARTRATE
     Dosage: 1 DROP, EVERY 8 HOURS
  3. PYRIMETHAMINE [Suspect]
     Active Substance: PYRIMETHAMINE
     Indication: CEREBRAL TOXOPLASMOSIS
     Dosage: 75 MG, 1X/DAY
     Dates: start: 202102
  4. KEPPRA [Suspect]
     Active Substance: LEVETIRACETAM
     Dosage: 500 MG, 2X/DAY
  5. LATANOPROST. [Suspect]
     Active Substance: LATANOPROST
     Dosage: 1 DROP, IN BOTH EYES AT BEDTIME
     Route: 047
  6. SIMVASTATIN. [Suspect]
     Active Substance: SIMVASTATIN
     Dosage: 10 MG, 1X/DAY

REACTIONS (1)
  - Renal failure [Unknown]

NARRATIVE: CASE EVENT DATE: 20210416
